FAERS Safety Report 21486153 (Version 1)
Quarter: 2022Q4

REPORT INFORMATION
  Report Type: Spontaneous
  Country: IN (occurrence: IN)
  Receive Date: 20221020
  Receipt Date: 20221020
  Transmission Date: 20230112
  Serious: Yes (Other)
  Sender: FDA-Public Use
  Company Number: IN-PFIZER INC-2020481903

PATIENT
  Age: 62 Year
  Sex: Female

DRUGS (3)
  1. PALBOCICLIB [Suspect]
     Active Substance: PALBOCICLIB
     Indication: Breast cancer metastatic
     Dosage: 125 MG, 1X/DAY
     Route: 048
     Dates: start: 20200829, end: 20201219
  2. FULVESTRANT [Concomitant]
     Active Substance: FULVESTRANT
  3. SUPRACAL [CALCIUM] [Concomitant]
     Dosage: UNK

REACTIONS (7)
  - Blood creatine increased [Unknown]
  - Blood albumin increased [Unknown]
  - Cardiomegaly [Unknown]
  - Inappropriate schedule of product administration [Recovered/Resolved]
  - Haemoglobin decreased [Unknown]
  - Arthralgia [Unknown]
  - Neoplasm progression [Unknown]

NARRATIVE: CASE EVENT DATE: 20220823
